FAERS Safety Report 10155565 (Version 1)
Quarter: 2014Q2

REPORT INFORMATION
  Report Type: Report from Study
  Country: BR (occurrence: BR)
  Receive Date: 20140506
  Receipt Date: 20140506
  Transmission Date: 20141212
  Serious: Yes (Hospitalization)
  Sender: FDA-Public Use
  Company Number: BR-BAYER-2014-064167

PATIENT
  Age: 38 Year
  Sex: Male

DRUGS (13)
  1. BETAFERON [Suspect]
     Indication: RELAPSING-REMITTING MULTIPLE SCLEROSIS
     Dosage: 1 ML, QOD
     Route: 058
  2. IBUPROFEN [Suspect]
     Indication: HEADACHE
     Dosage: 600 MG, PRN
     Route: 048
     Dates: start: 2010
  3. TYLENOL [PARACETAMOL] [Concomitant]
     Indication: HEADACHE
     Dosage: 15 DF, QD
     Route: 048
  4. NEOSALDINA [Concomitant]
     Indication: HEADACHE
     Dosage: 15 DF, QD
     Route: 048
  5. MESTINON [Concomitant]
     Indication: GAIT DISTURBANCE
     Dosage: 3 DF, QD
     Route: 048
     Dates: start: 201103
  6. MESTINON [Concomitant]
     Indication: SPEECH DISORDER
  7. MANTIDAN [Concomitant]
     Indication: GAIT DISTURBANCE
     Dosage: 3 DF, QD
     Route: 048
     Dates: start: 201103
  8. MANTIDAN [Concomitant]
     Indication: SPEECH DISORDER
  9. ROSUVASTATIN [Concomitant]
     Indication: INFLAMMATION
     Dosage: 10 MG, QD
     Route: 048
  10. VITAMIN D [Concomitant]
     Indication: INFLAMMATION
     Dosage: 10 GTT, QD
     Route: 048
     Dates: start: 201103
  11. OMEGA 3 [Concomitant]
     Indication: INFLAMMATION
     Dosage: 1 DF, QD
     Route: 048
     Dates: start: 201103
  12. PONDERA [Concomitant]
     Indication: SLEEP DISORDER
     Dosage: 1 DF, QD
     Route: 048
  13. PONDERA [Concomitant]
     Indication: PREMATURE EJACULATION

REACTIONS (12)
  - Multiple sclerosis relapse [Recovering/Resolving]
  - Urinary incontinence [Recovering/Resolving]
  - Dysphagia [Recovering/Resolving]
  - Speech disorder [Recovering/Resolving]
  - Dyspnoea [Recovering/Resolving]
  - Hypoaesthesia [Recovering/Resolving]
  - Sensory loss [Recovering/Resolving]
  - Injection site rash [Not Recovered/Not Resolved]
  - Rhinitis [Recovered/Resolved]
  - Tremor [Recovered/Resolved]
  - Drug dose omission [None]
  - Pre-existing condition improved [None]
